FAERS Safety Report 21873655 (Version 2)
Quarter: 2023Q1

REPORT INFORMATION
  Report Type: Spontaneous
  Country: US (occurrence: US)
  Receive Date: 20230117
  Receipt Date: 20230119
  Transmission Date: 20230417
  Serious: No
  Sender: FDA-Public Use
  Company Number: US-002147023-NVSC2023US010505

PATIENT
  Sex: Female

DRUGS (1)
  1. VOTRIENT [Suspect]
     Active Substance: PAZOPANIB HYDROCHLORIDE
     Indication: Breast cancer
     Dosage: 800 MG, QD
     Route: 048
     Dates: start: 202211

REACTIONS (4)
  - Gastrooesophageal reflux disease [Unknown]
  - Taste disorder [Unknown]
  - Headache [Unknown]
  - Insomnia [Unknown]
